APPROVED DRUG PRODUCT: CONRAY
Active Ingredient: IOTHALAMATE MEGLUMINE
Strength: 60%
Dosage Form/Route: INJECTABLE;INJECTION
Application: N013295 | Product #001
Applicant: LIEBEL-FLARSHEIM CO LLC
Approved: Approved Prior to Jan 1, 1982 | RLD: Yes | RS: Yes | Type: RX